FAERS Safety Report 10949017 (Version 2)
Quarter: 2015Q2

REPORT INFORMATION
  Report Type: Spontaneous
  Country: CA (occurrence: CA)
  Receive Date: 20150324
  Receipt Date: 20150515
  Transmission Date: 20150821
  Serious: Yes (Other)
  Sender: FDA-Public Use
  Company Number: CA-ASTRAZENECA-2015SE20656

PATIENT
  Age: 66 Year
  Sex: Female

DRUGS (6)
  1. FORXIGA [Suspect]
     Active Substance: DAPAGLIFLOZIN
     Indication: BLOOD GLUCOSE ABNORMAL
     Route: 048
     Dates: start: 20150228, end: 20150303
  2. FORXIGA [Suspect]
     Active Substance: DAPAGLIFLOZIN
     Indication: DRUG INTOLERANCE
     Route: 048
     Dates: start: 20150228, end: 20150303
  3. DICETEL [Concomitant]
     Active Substance: PINAVERIUM BROMIDE
  4. HUMALOG [Concomitant]
     Active Substance: INSULIN LISPRO
  5. TECH [Concomitant]
  6. COLCHICINE. [Concomitant]
     Active Substance: COLCHICINE

REACTIONS (5)
  - Chest discomfort [Recovering/Resolving]
  - Memory impairment [Not Recovered/Not Resolved]
  - Muscle tightness [Recovered/Resolved]
  - Muscle spasms [Recovered/Resolved]
  - Oropharyngeal pain [Recovering/Resolving]

NARRATIVE: CASE EVENT DATE: 20150303
